FAERS Safety Report 20628501 (Version 2)
Quarter: 2022Q4

REPORT INFORMATION
  Report Type: Report from Study
  Country: US (occurrence: US)
  Receive Date: 20220323
  Receipt Date: 20221228
  Transmission Date: 20230113
  Serious: Yes (Other)
  Sender: FDA-Public Use
  Company Number: US-PFIZER INC-202200441949

PATIENT

DRUGS (1)
  1. PHENYTOIN [Suspect]
     Active Substance: PHENYTOIN
     Indication: Product used for unknown indication
     Dosage: UNK, 100MG CAP 1X1000 BTL US, TAKE 200 MG IN THE MORNING AND 300 MG AT NIGHT
     Route: 065

REACTIONS (1)
  - Seizure [Unknown]
